FAERS Safety Report 9506559 (Version 2)
Quarter: 2013Q3

REPORT INFORMATION
  Report Type: Spontaneous
  Country: US (occurrence: US)
  Receive Date: 20130906
  Receipt Date: 20130906
  Transmission Date: 20140515
  Serious: No
  Sender: FDA-Public Use
  Company Number: US-TMC-CABO-13002918

PATIENT
  Age: 48 Year
  Sex: Male
  Weight: 74.75 kg

DRUGS (9)
  1. COMETRIQ [Suspect]
     Indication: RENAL CANCER
     Dosage: 140 MG, QD
     Route: 048
     Dates: start: 20130618
  2. COMETRIQ [Suspect]
     Dosage: 80 MG, QD
     Route: 048
     Dates: start: 20130725, end: 201308
  3. AMIODARONE [Concomitant]
  4. CYMBALTA [Concomitant]
  5. OXYCODONE [Concomitant]
  6. OXYCONTIN [Concomitant]
  7. PANTOPRAZOLE [Concomitant]
  8. VITAMINS [Concomitant]
  9. SENNA [Concomitant]

REACTIONS (3)
  - Nausea [Not Recovered/Not Resolved]
  - Vomiting [Not Recovered/Not Resolved]
  - Decreased appetite [Unknown]
